FAERS Safety Report 21445025 (Version 1)
Quarter: 2022Q4

REPORT INFORMATION
  Report Type: Spontaneous
  Country: IN (occurrence: IN)
  Receive Date: 20221012
  Receipt Date: 20221012
  Transmission Date: 20230112
  Serious: Yes (Hospitalization)
  Sender: FDA-Public Use
  Company Number: IN-MYLANLABS-2022M1112764

PATIENT
  Age: 19 Year
  Sex: Female

DRUGS (8)
  1. AMLODIPINE [Suspect]
     Active Substance: AMLODIPINE BESYLATE
     Indication: Hypertension
     Dosage: 10 MILLIGRAM (BOLUS DOSAGES)
     Route: 065
  2. CLONIDINE [Suspect]
     Active Substance: CLONIDINE
     Indication: Hypertension
     Dosage: 200 MICROGRAM (BOLUS DOSAGES)
     Route: 065
  3. FENTANYL [Suspect]
     Active Substance: FENTANYL
     Indication: Abdominal pain
     Dosage: UNK
     Route: 042
  4. TIROFIBAN [Suspect]
     Active Substance: TIROFIBAN
     Indication: Thrombosis
     Dosage: UNK (INTRA-RENAL)
     Route: 065
  5. NITROGLYCERIN [Suspect]
     Active Substance: NITROGLYCERIN
     Indication: Thrombosis
     Dosage: UNK (INTRA-RENAL)
     Route: 065
  6. SODIUM NITROPRUSSIDE [Suspect]
     Active Substance: SODIUM NITROPRUSSIDE
     Indication: Device occlusion
     Dosage: UNK (INTRA-RENAL)
     Route: 065
  7. LABETALOL [Concomitant]
     Active Substance: LABETALOL\LABETALOL HYDROCHLORIDE
     Indication: Hypertension
     Dosage: UNK
     Route: 042
  8. EVEROLIMUS [Concomitant]
     Active Substance: EVEROLIMUS
     Indication: Arterial occlusive disease
     Dosage: UNK
     Route: 065

REACTIONS (1)
  - Drug ineffective [Unknown]
